FAERS Safety Report 25235985 (Version 3)
Quarter: 2025Q2

REPORT INFORMATION
  Report Type: Spontaneous
  Country: PR (occurrence: PR)
  Receive Date: 20250424
  Receipt Date: 20250505
  Transmission Date: 20250717
  Serious: Yes (Death)
  Sender: PFIZER
  Company Number: PR-PFIZER INC-202500083465

PATIENT
  Age: 47 Year
  Sex: Female

DRUGS (4)
  1. LEVOFLOXACIN [Suspect]
     Active Substance: LEVOFLOXACIN
     Indication: Brain abscess
  2. LEVOFLOXACIN [Suspect]
     Active Substance: LEVOFLOXACIN
     Indication: Subcutaneous abscess
  3. SULFAMETHOXAZOLE\TRIMETHOPRIM [Suspect]
     Active Substance: SULFAMETHOXAZOLE\TRIMETHOPRIM
     Indication: Brain abscess
  4. SULFAMETHOXAZOLE\TRIMETHOPRIM [Suspect]
     Active Substance: SULFAMETHOXAZOLE\TRIMETHOPRIM
     Indication: Subcutaneous abscess

REACTIONS (1)
  - Drug-induced liver injury [Fatal]
